FAERS Safety Report 8861439 (Version 1)
Quarter: 2012Q4

REPORT INFORMATION
  Report Type: 
  Country: US (occurrence: None)
  Receive Date: 20121022
  Receipt Date: 20121022
  Transmission Date: 20130627
  Serious: Yes (Death, Hospitalization, Other)
  Sender: FDA-Public Use
  Company Number: PROF20120009

PATIENT
  Age: 92 Year
  Sex: Male

DRUGS (11)
  1. PROPAFENONE [Suspect]
     Indication: ATRIAL FLUTTER
     Route: 048
     Dates: end: 2012
  2. PRADAXA [Suspect]
     Indication: ANTICOAGULANT THERAPY
     Dates: start: 2012, end: 2012
  3. ERYTHROMYCIN [Suspect]
     Indication: PRODUCT USED FOR UNKNOWN INDICATION
     Dates: end: 2012
  4. PREDNISONE [Concomitant]
  5. OMEPRAZOLE (OMEPRAZOLE) (20 MILLIGRAM, UNKNOWN) (OMEPRAZOLE) [Concomitant]
  6. ADVAIR (FLUTICASONE PROPIONATE, SALMETEROL XINAFOATE) (FLUTICASONE PROPIONATE, SALMETEROL XINAFOATE) [Concomitant]
  7. DIGOXIN (DIGOXIN) (0.125 MILLIGRAM, UNKNOWN) [Concomitant]
  8. SPIRIVA (TIOTROPIUM BROMIDE) (UNKNOWN) (TIOTROPIUM BROMIDE) [Concomitant]
  9. FINASTERIDE (FINASTERIDE) (5 MILLIGRAM, UNKNOWN) (FINASTERIDE) [Concomitant]
  10. SYNTHROID (LEVOTHYROXINE SODIUM) (0.1 MILLIGRAM, UNKNOWN) (LEVOTHYROXINE SODIUM) [Concomitant]
  11. FOLIC ACID (FOLIC ACID) (1 MILLIGRAM, UNKNOWN) (FOLIC ACID) [Concomitant]

REACTIONS (8)
  - Asthenia [None]
  - Blood pressure decreased [None]
  - Haemoglobin decreased [None]
  - Blood urea increased [None]
  - Creatinine renal clearance decreased [None]
  - Gastric ulcer haemorrhage [None]
  - Platelet count decreased [None]
  - Potentiating drug interaction [None]
